FAERS Safety Report 6248338-X (Version None)
Quarter: 2009Q2

REPORT INFORMATION
  Report Type: 
  Country: None (occurrence: None)
  Receive Date: 20090629
  Receipt Date: 20090618
  Transmission Date: 20091009
  Serious: Yes (Other)
  Sender: FDA-Public Use
  Company Number: PHHY2009BR24534

PATIENT
  Age: 70 Year
  Sex: Female

DRUGS (8)
  1. FORASEQ [Suspect]
     Dosage: UNK
     Dates: start: 20080601
  2. PREDNISONE TAB [Concomitant]
     Dosage: UNK
     Dates: start: 20080201
  3. CHOLIC ACID [Concomitant]
     Dosage: UNK
     Dates: start: 20080201
  4. CLONAZEPAM [Concomitant]
     Dosage: UNK
     Dates: start: 20080201
  5. OMEPRAZOLE [Concomitant]
     Dosage: UNK
     Dates: start: 20080201
  6. COLLYRIUM [Concomitant]
  7. RADIOTHERAPY [Concomitant]
     Dosage: UNK
     Dates: start: 20090101
  8. CHEMOTHERAPEUTICS NOS [Concomitant]
     Dosage: UNK
     Dates: start: 20090101

REACTIONS (4)
  - ALOPECIA [None]
  - NERVOUS SYSTEM DISORDER [None]
  - THERMAL BURN [None]
  - WOUND [None]
